FAERS Safety Report 17431922 (Version 1)
Quarter: 2020Q1

REPORT INFORMATION
  Report Type: Report from Study
  Country: JP (occurrence: JP)
  Receive Date: 20200218
  Receipt Date: 20200218
  Transmission Date: 20200409
  Serious: Yes (Other)
  Sender: FDA-Public Use
  Company Number: JP-BAUSCH-BL-2020-004512

PATIENT
  Age: 77 Year
  Sex: Male
  Weight: 54 kg

DRUGS (43)
  1. FLUOROURACIL. [Suspect]
     Active Substance: FLUOROURACIL
     Dosage: ONCE
     Route: 040
     Dates: start: 20190704, end: 20190704
  2. FLUOROURACIL. [Suspect]
     Active Substance: FLUOROURACIL
     Dosage: ONCE
     Route: 041
     Dates: start: 20190704, end: 20190704
  3. ZALTRAP [Suspect]
     Active Substance: ZIV-AFLIBERCEPT
     Indication: RECTAL CANCER
     Dosage: ONCE
     Route: 041
     Dates: start: 20190123, end: 20190123
  4. ZALTRAP [Suspect]
     Active Substance: ZIV-AFLIBERCEPT
     Dosage: ONCE
     Route: 041
     Dates: start: 20190704, end: 20190704
  5. ZALTRAP [Suspect]
     Active Substance: ZIV-AFLIBERCEPT
     Dosage: ONCE
     Route: 041
     Dates: start: 20190905, end: 20190905
  6. ZALTRAP [Suspect]
     Active Substance: ZIV-AFLIBERCEPT
     Dosage: ONCE
     Route: 041
     Dates: start: 20191017, end: 20191017
  7. CALCIUM FOLINATE [Suspect]
     Active Substance: LEUCOVORIN CALCIUM
     Indication: RECTAL CANCER
     Dosage: ONCE
     Route: 065
     Dates: start: 20190123, end: 20190123
  8. CALCIUM FOLINATE [Suspect]
     Active Substance: LEUCOVORIN CALCIUM
     Route: 065
     Dates: start: 20190227, end: 20190320
  9. IRINOTECAN [Suspect]
     Active Substance: IRINOTECAN
     Dosage: ONCE
     Route: 065
     Dates: start: 20190529, end: 20190529
  10. IRINOTECAN [Suspect]
     Active Substance: IRINOTECAN
     Route: 065
  11. FLUOROURACIL. [Suspect]
     Active Substance: FLUOROURACIL
     Dosage: ONCE
     Route: 040
     Dates: start: 20190529, end: 20190529
  12. FLUOROURACIL. [Suspect]
     Active Substance: FLUOROURACIL
     Dosage: ONCE
     Route: 040
     Dates: start: 20190808, end: 20190808
  13. FLUOROURACIL. [Suspect]
     Active Substance: FLUOROURACIL
     Dosage: ONCE
     Route: 041
     Dates: start: 20190808, end: 20190808
  14. FLUOROURACIL. [Suspect]
     Active Substance: FLUOROURACIL
     Dosage: ONCE
     Route: 041
     Dates: start: 20191017, end: 20191017
  15. IRINOTECAN [Suspect]
     Active Substance: IRINOTECAN
     Route: 065
     Dates: start: 20190808, end: 20190808
  16. FLUOROURACIL. [Suspect]
     Active Substance: FLUOROURACIL
     Dosage: ONCE
     Route: 041
     Dates: start: 20190424, end: 20190424
  17. ZALTRAP [Suspect]
     Active Substance: ZIV-AFLIBERCEPT
     Dosage: ONCE
     Route: 041
     Dates: start: 20190529, end: 20190529
  18. CALCIUM FOLINATE [Suspect]
     Active Substance: LEUCOVORIN CALCIUM
     Dosage: ONCE
     Route: 065
     Dates: start: 20190704, end: 20190704
  19. CALCIUM FOLINATE [Suspect]
     Active Substance: LEUCOVORIN CALCIUM
     Route: 065
  20. IRINOTECAN [Suspect]
     Active Substance: IRINOTECAN
     Dosage: ONCE
     Route: 065
     Dates: start: 20190424, end: 20190424
  21. FLUOROURACIL. [Suspect]
     Active Substance: FLUOROURACIL
     Indication: RECTAL CANCER
     Route: 065
  22. FLUOROURACIL. [Suspect]
     Active Substance: FLUOROURACIL
     Dosage: ONCE
     Route: 040
     Dates: start: 20190123, end: 20190123
  23. FLUOROURACIL. [Suspect]
     Active Substance: FLUOROURACIL
     Dosage: ONCE
     Route: 040
     Dates: start: 20190905, end: 20190905
  24. FLUOROURACIL. [Suspect]
     Active Substance: FLUOROURACIL
     Dosage: ONCE
     Route: 041
     Dates: start: 20190529, end: 20190529
  25. IRINOTECAN [Suspect]
     Active Substance: IRINOTECAN
     Dosage: ONCE
     Route: 065
     Dates: start: 20190704, end: 20190704
  26. IRINOTECAN [Suspect]
     Active Substance: IRINOTECAN
     Route: 065
     Dates: start: 20191017, end: 20191017
  27. FLUOROURACIL. [Suspect]
     Active Substance: FLUOROURACIL
     Indication: RECTAL CANCER
     Dosage: ONCE
     Route: 040
     Dates: start: 20190123, end: 20190123
  28. FLUOROURACIL. [Suspect]
     Active Substance: FLUOROURACIL
     Route: 041
     Dates: start: 20190227, end: 20190320
  29. FLUOROURACIL. [Suspect]
     Active Substance: FLUOROURACIL
     Route: 041
     Dates: start: 20190227, end: 20190320
  30. FLUOROURACIL. [Suspect]
     Active Substance: FLUOROURACIL
     Dosage: ONCE
     Route: 041
     Dates: start: 20190905, end: 20190905
  31. ZALTRAP [Suspect]
     Active Substance: ZIV-AFLIBERCEPT
     Dosage: ONCE
     Route: 041
     Dates: start: 20190808, end: 20190808
  32. ZALTRAP [Suspect]
     Active Substance: ZIV-AFLIBERCEPT
     Route: 041
     Dates: start: 20190227, end: 20190320
  33. CALCIUM FOLINATE [Suspect]
     Active Substance: LEUCOVORIN CALCIUM
     Dosage: ONCE
     Route: 065
     Dates: start: 20190424, end: 20190424
  34. CALCIUM FOLINATE [Suspect]
     Active Substance: LEUCOVORIN CALCIUM
     Dosage: ONCE
     Route: 065
     Dates: start: 20191017, end: 20191017
  35. CALCIUM FOLINATE [Suspect]
     Active Substance: LEUCOVORIN CALCIUM
     Dosage: ONCE
     Route: 065
     Dates: start: 20190529, end: 20190529
  36. IRINOTECAN [Suspect]
     Active Substance: IRINOTECAN
     Indication: RECTAL CANCER
     Dosage: ONCE
     Route: 065
     Dates: start: 20190123, end: 20190123
  37. IRINOTECAN [Suspect]
     Active Substance: IRINOTECAN
     Route: 065
     Dates: start: 20190905, end: 20190905
  38. FLUOROURACIL. [Suspect]
     Active Substance: FLUOROURACIL
     Dosage: ONCE
     Route: 040
     Dates: start: 20190424, end: 20190424
  39. FLUOROURACIL. [Suspect]
     Active Substance: FLUOROURACIL
     Dosage: ONCE
     Route: 040
     Dates: start: 20191017, end: 20191017
  40. ZALTRAP [Suspect]
     Active Substance: ZIV-AFLIBERCEPT
     Dosage: ONCE
     Route: 041
     Dates: start: 20190424, end: 20190424
  41. CALCIUM FOLINATE [Suspect]
     Active Substance: LEUCOVORIN CALCIUM
     Dosage: ONCE
     Route: 065
     Dates: start: 20190808, end: 20190808
  42. CALCIUM FOLINATE [Suspect]
     Active Substance: LEUCOVORIN CALCIUM
     Dosage: ONCE
     Route: 065
     Dates: start: 20190905, end: 20190905
  43. IRINOTECAN [Suspect]
     Active Substance: IRINOTECAN
     Route: 065
     Dates: start: 20190227, end: 20190320

REACTIONS (1)
  - Neutropenia [Recovered/Resolved]

NARRATIVE: CASE EVENT DATE: 20190213
